FAERS Safety Report 7703457-3 (Version None)
Quarter: 2011Q3

REPORT INFORMATION
  Report Type: 
  Country: None (occurrence: None)
  Receive Date: 20110823
  Receipt Date: 20110811
  Transmission Date: 20111222
  Serious: Yes (Other)
  Sender: FDA-Public Use
  Company Number: CA-SHIRE-ALL1-2011-01886

PATIENT
  Sex: Male
  Weight: 23.5 kg

DRUGS (3)
  1. VYVANSE [Suspect]
     Dosage: 20 MG, 1X/DAY:QD
     Route: 048
     Dates: start: 20110601
  2. VYVANSE [Suspect]
     Dosage: 20 MG, 1X/DAY:QD
     Route: 048
     Dates: start: 20110601, end: 20110601
  3. VYVANSE [Suspect]
     Indication: ATTENTION DEFICIT/HYPERACTIVITY DISORDER
     Dosage: 30 MG, 1X/DAY:QD
     Route: 048
     Dates: start: 20110601, end: 20110601

REACTIONS (2)
  - DEPRESSION [None]
  - SUICIDAL IDEATION [None]
